FAERS Safety Report 4296013-3 (Version None)
Quarter: 2004Q1

REPORT INFORMATION
  Report Type: 
  Country: None (occurrence: None)
  Receive Date: 20040212
  Receipt Date: 20040203
  Transmission Date: 20041129
  Serious: Yes (Other)
  Sender: FDA-Public Use
  Company Number: 04-000098

PATIENT
  Age: 18 Year
  Sex: Female

DRUGS (1)
  1. LOESTRIN (ETHINYLESTRADIOL, NORETHINDRONE ACETATE) TABLET [Suspect]
     Indication: CONTRACEPTION
     Dosage: ORAL
     Route: 048

REACTIONS (1)
  - OPEN ANGLE GLAUCOMA [None]
